FAERS Safety Report 18172016 (Version 2)
Quarter: 2020Q4

REPORT INFORMATION
  Report Type: Report from Study
  Country: US (occurrence: US)
  Receive Date: 20200820
  Receipt Date: 20201001
  Transmission Date: 20210113
  Serious: No
  Sender: FDA-Public Use
  Company Number: NVSC2020US229011

PATIENT
  Sex: Female

DRUGS (2)
  1. OTEZLA [Concomitant]
     Active Substance: APREMILAST
     Indication: PRODUCT USED FOR UNKNOWN INDICATION
     Dosage: UNK
     Route: 065
  2. COSENTYX [Suspect]
     Active Substance: SECUKINUMAB
     Indication: PSORIATIC ARTHROPATHY
     Dosage: 150 MG, QW (ONCE A WEEK FOR 4 WEEKS)
     Route: 058

REACTIONS (5)
  - Neck pain [Unknown]
  - Incorrect product administration duration [Unknown]
  - Drug ineffective [Unknown]
  - Arthralgia [Unknown]
  - Back pain [Unknown]
